FAERS Safety Report 26010797 (Version 1)
Quarter: 2025Q4

REPORT INFORMATION
  Report Type: Spontaneous
  Country: EU (occurrence: None)
  Receive Date: 20251107
  Receipt Date: 20251107
  Transmission Date: 20260117
  Serious: Yes (Hospitalization, Other)
  Sender: UCB
  Company Number: EU-UCBSA-2025069248

PATIENT
  Age: 43 Year

DRUGS (1)
  1. BIMEKIZUMAB [Suspect]
     Active Substance: BIMEKIZUMAB
     Indication: Hidradenitis
     Dosage: 320 MILLIGRAM, EV 8 WEEKS

REACTIONS (6)
  - Hidradenitis [Unknown]
  - Condition aggravated [Unknown]
  - Sepsis [Unknown]
  - Abscess drainage [Unknown]
  - Pyrexia [Unknown]
  - Post procedural complication [Unknown]
